FAERS Safety Report 7739908-8 (Version None)
Quarter: 2011Q3

REPORT INFORMATION
  Report Type: 
  Country: None (occurrence: None)
  Receive Date: 20110909
  Receipt Date: 20110906
  Transmission Date: 20111222
  Serious: Yes (Death, Hospitalization, Other)
  Sender: FDA-Public Use
  Company Number: PHHY2010AU39727

PATIENT
  Sex: Male

DRUGS (5)
  1. VALPROATE SODIUM [Concomitant]
     Dosage: 500 MG, BID
     Route: 048
  2. OLANZAPINE [Concomitant]
     Dosage: 10 MG, BID
     Route: 048
  3. CLOZAPINE [Suspect]
     Dosage: 200 MG, UNK
     Dates: start: 20100603, end: 20100604
  4. LITHIUM SR [Concomitant]
     Dosage: 450 MG, BID
     Route: 048
  5. CLOZAPINE [Suspect]
     Dosage: UNK UKN, UNK
     Dates: start: 20100520, end: 20100604

REACTIONS (8)
  - LUNG CONSOLIDATION [None]
  - TROPONIN INCREASED [None]
  - TACHYCARDIA [None]
  - MYOCARDITIS [None]
  - ELECTROCARDIOGRAM ABNORMAL [None]
  - HYPOTENSION [None]
  - MULTI-ORGAN FAILURE [None]
  - PYREXIA [None]
